FAERS Safety Report 9201691 (Version 2)
Quarter: 2013Q2

REPORT INFORMATION
  Report Type: Spontaneous
  Country: MX (occurrence: MX)
  Receive Date: 20130401
  Receipt Date: 20130403
  Transmission Date: 20140414
  Serious: Yes (Death, Hospitalization)
  Sender: FDA-Public Use
  Company Number: PHHY2013MX031075

PATIENT
  Age: 61 Year
  Sex: Female

DRUGS (1)
  1. CO-DIOVAN [Suspect]
     Indication: HYPERTENSION
     Dosage: 02 DF DAILY, (80 MG VALS/12.5MG HYDRO)
     Route: 048

REACTIONS (1)
  - Gallbladder disorder [Fatal]
